FAERS Safety Report 7742448-3 (Version None)
Quarter: 2011Q3

REPORT INFORMATION
  Report Type: 
  Country: None (occurrence: None)
  Receive Date: 20110912
  Receipt Date: 20110830
  Transmission Date: 20111222
  Serious: Yes (Hospitalization)
  Sender: FDA-Public Use
  Company Number: FR-ELI_LILLY_AND_COMPANY-FR201108008961

PATIENT
  Sex: Male
  Weight: 68 kg

DRUGS (21)
  1. GEMCITABINE HYDROCHLORIDE [Suspect]
     Indication: DIFFUSE LARGE B-CELL LYMPHOMA
     Dosage: 1710.9 MG, QD
     Route: 065
     Dates: start: 20110228
  2. GEMCITABINE HYDROCHLORIDE [Suspect]
     Dosage: 1672.88 MG, QD
     Route: 065
     Dates: start: 20110328
  3. BISOPROLOL FUMARATE [Concomitant]
     Indication: HYPERTENSION
     Dosage: 5 MG, 1 IN 1 DAY
     Route: 048
     Dates: start: 20080101
  4. PLAVIX [Concomitant]
     Indication: ARTERIAL DISORDER
     Dosage: 150 MG, 2 IN 1 DAY
     Route: 048
     Dates: start: 20080101
  5. AMOXICILLIN AND CLAVULANATE POTASSIUM [Concomitant]
     Dosage: 15 G, UNK
  6. LEXOMIL [Concomitant]
     Indication: ANXIETY
  7. OXYCODONE HCL [Concomitant]
     Indication: PAIN
  8. GENTAMICIN [Concomitant]
     Dosage: 180 DF, UNK
  9. ACETAMINOPHEN [Concomitant]
     Indication: PAIN
  10. TADENAN [Concomitant]
     Indication: PROSTATIC DISORDER
     Dosage: 200 MG, 4 IN 1 DAY
     Route: 048
     Dates: start: 20090101
  11. PANTOPRAZOLE [Concomitant]
     Indication: ABDOMINAL PAIN UPPER
     Dosage: 20 MG, 1 IN 1 DAY
     Route: 048
     Dates: start: 20080101
  12. METOCLOPRAMIDE [Concomitant]
     Indication: NAUSEA
  13. OLMESARTAN MEDOXOMIL [Concomitant]
     Indication: HYPERTENSION
     Dosage: 30 MG, 1 IN 1 DAY
     Route: 048
     Dates: start: 20080101
  14. ALLOPURINOL [Concomitant]
     Indication: HYPERURICAEMIA
     Dosage: 100 MG, 1 IN 1 DAY
     Route: 048
     Dates: start: 20090101
  15. LISINOPRIL [Concomitant]
     Indication: HYPERTENSION
     Dosage: 20 MG, 1 IN 1 DAY
     Route: 048
     Dates: start: 20080101
  16. LANTUS [Concomitant]
     Indication: DIABETES MELLITUS INADEQUATE CONTROL
  17. LEVOTHYROXINE SODIUM [Concomitant]
     Indication: HYPOTHYROIDISM
     Dosage: 50 UG, 1 IN 1 DAY
     Route: 048
     Dates: start: 20080101
  18. ACTOS [Concomitant]
     Indication: TYPE 2 DIABETES MELLITUS
     Dosage: 30 MG, UNK
     Route: 048
     Dates: start: 20080101
  19. AMLODIPINE [Concomitant]
     Indication: HYPERTENSION
     Dosage: 5 MG, 1 IN 1 DAY
     Route: 048
     Dates: start: 20080101
  20. SOLUTIONS FOR PARENTERAL NUTRITION [Concomitant]
     Indication: DECREASED APPETITE
  21. MORPHINE [Concomitant]
     Indication: PAIN
     Route: 048

REACTIONS (2)
  - DEHYDRATION [None]
  - VERTIGO POSITIONAL [None]
